FAERS Safety Report 16652107 (Version 3)
Quarter: 2019Q4

REPORT INFORMATION
  Report Type: Report from Study
  Country: US (occurrence: US)
  Receive Date: 20190731
  Receipt Date: 20191007
  Transmission Date: 20200122
  Serious: Yes (Death, Hospitalization)
  Sender: FDA-Public Use
  Company Number: US-BAYER-2019-138997

PATIENT
  Age: 77 Year
  Sex: Male

DRUGS (13)
  1. IRBESARTAN. [Concomitant]
     Active Substance: IRBESARTAN
  2. XOFIGO [Suspect]
     Active Substance: RADIUM RA-223 DICHLORIDE
     Indication: PROSTATE CANCER METASTATIC
     Dosage: 127 ?CI
     Dates: start: 20190627, end: 20190627
  3. NORCO [Concomitant]
     Active Substance: ACETAMINOPHEN\HYDROCODONE BITARTRATE
  4. PRILOSEC [Concomitant]
     Active Substance: OMEPRAZOLE MAGNESIUM
  5. METOPROLOL. [Concomitant]
     Active Substance: METOPROLOL
  6. LUPRON [Concomitant]
     Active Substance: LEUPROLIDE ACETATE
     Dosage: 22.5 MG EVERY 3 MONTHS
     Route: 030
  7. ATORVASTATIN [Concomitant]
     Active Substance: ATORVASTATIN
     Dosage: 40MG ONCE A DAY
     Route: 048
  8. XOFIGO [Suspect]
     Active Substance: RADIUM RA-223 DICHLORIDE
     Indication: PROSTATE CANCER METASTATIC
     Dosage: 127 ?CI
     Dates: start: 20190502, end: 20190502
  9. ASPIRIN [ACETYLSALICYLIC ACID] [Concomitant]
     Active Substance: ASPIRIN
     Dosage: 81 MG DAY
  10. XOFIGO [Suspect]
     Active Substance: RADIUM RA-223 DICHLORIDE
     Indication: PROSTATE CANCER METASTATIC
     Dosage: 129 ?CI
     Dates: start: 20190530, end: 20190530
  11. DEXAMETHASONE. [Concomitant]
     Active Substance: DEXAMETHASONE
  12. MEGACE [Concomitant]
     Active Substance: MEGESTROL ACETATE
  13. PLAVIX [Concomitant]
     Active Substance: CLOPIDOGREL BISULFATE
     Dosage: 75MG ONCE A DAY

REACTIONS (5)
  - Anaemia [None]
  - Urinary tract infection [None]
  - Confusional state [None]
  - Thrombocytopenia [None]
  - Sepsis [Fatal]

NARRATIVE: CASE EVENT DATE: 201907
